FAERS Safety Report 6737507-8 (Version None)
Quarter: 2010Q2

REPORT INFORMATION
  Report Type: 
  Country: None (occurrence: None)
  Receive Date: 20100524
  Receipt Date: 20100514
  Transmission Date: 20101027
  Serious: Yes (Life-Threatening)
  Sender: FDA-Public Use
  Company Number: JP-BAYER-201012346BYL

PATIENT
  Age: 65 Year
  Sex: Male
  Weight: 57 kg

DRUGS (15)
  1. NEXAVAR [Suspect]
     Indication: RENAL CELL CARCINOMA
     Dosage: UNIT DOSE: 200 MG
     Route: 048
     Dates: start: 20080320, end: 20080402
  2. NEXAVAR [Suspect]
     Dosage: UNIT DOSE: 200 MG
     Route: 048
     Dates: start: 20080409, end: 20080616
  3. NEXAVAR [Suspect]
     Dosage: UNIT DOSE: 200 MG
     Route: 048
     Dates: start: 20080701, end: 20080730
  4. NEXAVAR [Suspect]
     Dosage: UNIT DOSE: 200 MG
     Route: 048
     Dates: start: 20080813, end: 20080909
  5. NEXAVAR [Suspect]
     Dosage: UNIT DOSE: 200 MG
     Route: 048
     Dates: start: 20080924, end: 20081009
  6. NEXAVAR [Suspect]
     Dosage: UNIT DOSE: 200 MG
     Route: 048
     Dates: start: 20081015, end: 20081107
  7. NEXAVAR [Suspect]
     Dosage: UNIT DOSE: 200 MG
     Route: 048
     Dates: start: 20081115, end: 20081130
  8. NEXAVAR [Suspect]
     Dosage: UNIT DOSE: 200 MG
     Route: 048
     Dates: start: 20081210, end: 20081224
  9. NEXAVAR [Suspect]
     Dosage: UNIT DOSE: 200 MG
     Route: 048
     Dates: start: 20090101, end: 20090114
  10. NEXAVAR [Suspect]
     Dosage: UNIT DOSE: 200 MG
     Route: 048
     Dates: start: 20090122, end: 20090204
  11. NEXAVAR [Suspect]
     Dosage: UNIT DOSE: 200 MG
     Route: 048
     Dates: start: 20090211, end: 20090225
  12. NEXAVAR [Suspect]
     Dosage: UNIT DOSE: 200 MG
     Route: 048
     Dates: start: 20090304, end: 20090318
  13. NEXAVAR [Suspect]
     Dosage: UNIT DOSE: 200 MG
     Route: 048
     Dates: start: 20090326
  14. LOXOPROFEN SODIUM [Concomitant]
     Indication: PAIN
     Route: 048
     Dates: start: 20080320
  15. FLIVAS [Concomitant]
     Indication: NOCTURIA
     Route: 048
     Dates: start: 20080924, end: 20081008

REACTIONS (6)
  - ATRIAL FIBRILLATION [None]
  - BLOOD AMYLASE INCREASED [None]
  - HYPERTENSION [None]
  - HYPOPHOSPHATAEMIA [None]
  - LIPASE INCREASED [None]
  - PALMAR-PLANTAR ERYTHRODYSAESTHESIA SYNDROME [None]
